FAERS Safety Report 21349531 (Version 1)
Quarter: 2022Q3

REPORT INFORMATION
  Report Type: Spontaneous
  Country: CN (occurrence: CN)
  Receive Date: 20220919
  Receipt Date: 20220919
  Transmission Date: 20221027
  Serious: Yes (Hospitalization)
  Sender: FDA-Public Use
  Company Number: CN-NOVARTISPH-NVSC2022CN210848

PATIENT

DRUGS (1)
  1. DIOVAN [Suspect]
     Active Substance: VALSARTAN
     Indication: Diabetic nephropathy
     Dosage: 80 MG, QD
     Route: 048

REACTIONS (2)
  - Angina pectoris [Unknown]
  - Product use in unapproved indication [Unknown]
